FAERS Safety Report 25948913 (Version 1)
Quarter: 2025Q4

REPORT INFORMATION
  Report Type: Report from Study
  Country: EU (occurrence: EU)
  Receive Date: 20251022
  Receipt Date: 20251022
  Transmission Date: 20260117
  Serious: Yes (Hospitalization)
  Sender: PFIZER
  Company Number: EU-SANDOZ-SDZ2025DE075286

PATIENT
  Sex: Female

DRUGS (4)
  1. METHOTREXATE SODIUM [Suspect]
     Active Substance: METHOTREXATE SODIUM
     Dosage: 15 UNK
     Route: 065
     Dates: start: 202411
  2. HYRIMOZ [Suspect]
     Active Substance: ADALIMUMAB-ADAZ
     Dosage: 40 MG
     Route: 065
     Dates: start: 202411, end: 202501
  3. LEFLUNOMIDE [Suspect]
     Active Substance: LEFLUNOMIDE
     Dosage: 20
     Route: 065
  4. CIMZIA [Suspect]
     Active Substance: CERTOLIZUMAB PEGOL
     Dosage: 200 MG
     Route: 065
     Dates: start: 202504

REACTIONS (8)
  - Rheumatoid arthritis [Recovered/Resolved]
  - Dermatitis psoriasiform [Not Recovered/Not Resolved]
  - Rhinitis [Not Recovered/Not Resolved]
  - Bursa removal [Recovered/Resolved]
  - Hypoaesthesia oral [Recovered/Resolved]
  - Tongue blistering [Recovered/Resolved]
  - Ageusia [Recovered/Resolved]
  - Cough [Not Recovered/Not Resolved]

NARRATIVE: CASE EVENT DATE: 20241101
